FAERS Safety Report 11795481 (Version 1)
Quarter: 2015Q4

REPORT INFORMATION
  Report Type: Spontaneous
  Country: US (occurrence: US)
  Receive Date: 20151202
  Receipt Date: 20151202
  Transmission Date: 20160305
  Serious: No
  Sender: FDA-Public Use
  Company Number: GXBR2015US001288

PATIENT
  Sex: Female

DRUGS (1)
  1. AMITRIPTYLINE HCL TABLETS USP [Suspect]
     Active Substance: AMITRIPTYLINE HYDROCHLORIDE
     Indication: PRODUCT USED FOR UNKNOWN INDICATION
     Dosage: UNK DF, UNK
     Route: 048

REACTIONS (3)
  - Drug dispensing error [Recovered/Resolved]
  - Memory impairment [Recovered/Resolved]
  - Confusional state [Recovered/Resolved]
